FAERS Safety Report 10061087 (Version 2)
Quarter: 2014Q2

REPORT INFORMATION
  Report Type: Spontaneous
  Country: US (occurrence: US)
  Receive Date: 20140405
  Receipt Date: 20140405
  Transmission Date: 20141212
  Serious: Yes (Other)
  Sender: FDA-Public Use
  Company Number: US-GE HEALTHCARE MEDICAL DIAGNOSTICS-OSCN-PR-0811S-0617

PATIENT
  Sex: Male

DRUGS (18)
  1. MAGNEVIST [Suspect]
     Route: 042
     Dates: start: 19960205, end: 19960205
  2. MAGNEVIST [Suspect]
     Route: 042
     Dates: start: 19960819, end: 19960819
  3. MAGNEVIST [Suspect]
     Route: 042
     Dates: start: 19970411, end: 19970411
  4. MAGNEVIST [Suspect]
     Route: 042
     Dates: start: 20000225, end: 20000225
  5. MAGNEVIST [Suspect]
     Route: 042
     Dates: start: 20010507, end: 20010507
  6. MAGNEVIST [Suspect]
     Route: 042
     Dates: start: 20011130, end: 20011130
  7. MAGNEVIST [Suspect]
     Route: 042
     Dates: start: 20020307, end: 20020307
  8. MAGNEVIST [Suspect]
     Route: 042
     Dates: start: 20020920, end: 20020920
  9. MAGNEVIST [Suspect]
     Route: 042
     Dates: start: 20030226, end: 20030226
  10. MAGNEVIST [Suspect]
     Route: 042
     Dates: start: 20040225, end: 20040225
  11. MAGNEVIST [Suspect]
     Route: 042
     Dates: start: 20040427, end: 20040427
  12. MAGNEVIST [Suspect]
     Route: 042
     Dates: start: 20040809, end: 20040809
  13. MAGNEVIST [Suspect]
     Route: 042
     Dates: start: 20050126, end: 20050126
  14. MAGNEVIST [Suspect]
     Route: 042
     Dates: start: 20050803, end: 20050803
  15. MAGNEVIST [Suspect]
     Route: 042
     Dates: start: 20060201, end: 20060201
  16. MAGNEVIST [Suspect]
     Route: 042
     Dates: start: 20060512, end: 20060512
  17. MAGNEVIST [Suspect]
     Route: 042
     Dates: start: 20061009, end: 20061009
  18. MAGNEVIST [Suspect]
     Indication: PRODUCT USED FOR UNKNOWN INDICATION
     Route: 042
     Dates: start: 19950831, end: 19950831

REACTIONS (1)
  - Nephrogenic systemic fibrosis [Not Recovered/Not Resolved]
